FAERS Safety Report 7011370-2 (Version None)
Quarter: 2010Q3

REPORT INFORMATION
  Report Type: 
  Country: None (occurrence: None)
  Receive Date: 20100922
  Receipt Date: 20100922
  Transmission Date: 20110219
  Serious: No
  Sender: FDA-Public Use
  Company Number: None

PATIENT
  Sex: Female
  Weight: 68.0396 kg

DRUGS (1)
  1. PHENTERMINE [Suspect]
     Indication: WEIGHT CONTROL
     Dosage: 37.5 1 CAP DAILY
     Dates: start: 20100821

REACTIONS (7)
  - ANXIETY [None]
  - BURNING SENSATION [None]
  - CONFUSIONAL STATE [None]
  - DRY MOUTH [None]
  - DYSURIA [None]
  - MEMORY IMPAIRMENT [None]
  - PANIC ATTACK [None]
